FAERS Safety Report 10430677 (Version 2)
Quarter: 2014Q3

REPORT INFORMATION
  Report Type: Spontaneous
  Country: CN (occurrence: CN)
  Receive Date: 20140904
  Receipt Date: 20140908
  Transmission Date: 20150326
  Serious: Yes (Death)
  Sender: FDA-Public Use
  Company Number: CN-BRISTOL-MYERS SQUIBB COMPANY-21365184

PATIENT
  Sex: Male

DRUGS (2)
  1. BYETTA [Suspect]
     Active Substance: EXENATIDE
     Indication: DIABETES MELLITUS
     Dosage: RECEIVED 2YEARS AGO + DISCONTINUED ABOUT 2 YEARS BEFORE.
     Route: 058
     Dates: start: 2012, end: 2012
  2. BYETTA [Suspect]
     Active Substance: EXENATIDE
     Indication: OBESITY
     Dosage: RECEIVED 2YEARS AGO + DISCONTINUED ABOUT 2 YEARS BEFORE.
     Route: 058
     Dates: start: 2012, end: 2012

REACTIONS (1)
  - Myocardial infarction [Fatal]
